FAERS Safety Report 9412858 (Version 1)
Quarter: 2013Q3

REPORT INFORMATION
  Report Type: Spontaneous
  Country: JP (occurrence: JP)
  Receive Date: 20130722
  Receipt Date: 20130722
  Transmission Date: 20140515
  Serious: Yes (Death, Other)
  Sender: FDA-Public Use
  Company Number: PHHY2013JP075973

PATIENT
  Age: 32 Month
  Sex: Female

DRUGS (12)
  1. FLUDARABINE [Suspect]
     Indication: BONE MARROW CONDITIONING REGIMEN
     Dosage: 30 MG/M2 PER DOSE X 5 DAYS
  2. CYCLOPHOSPHAMIDE [Suspect]
     Indication: BONE MARROW CONDITIONING REGIMEN
     Dosage: 50 MG/KG PER DOSE X 2 DAYS
  3. CYCLOPHOSPHAMIDE [Suspect]
     Dosage: 60 MG/KG/DOSE X 2 DAYS
  4. METHOTREXATE [Suspect]
     Indication: BONE MARROW CONDITIONING REGIMEN
  5. METHOTREXATE [Suspect]
     Indication: PROPHYLAXIS AGAINST GRAFT VERSUS HOST DISEASE
  6. TACROLIMUS [Suspect]
     Indication: BONE MARROW CONDITIONING REGIMEN
  7. TACROLIMUS [Suspect]
     Indication: PROPHYLAXIS AGAINST GRAFT VERSUS HOST DISEASE
  8. ETOPOSIDE [Suspect]
     Indication: BONE MARROW CONDITIONING REGIMEN
     Dosage: 60 MG/KG/DOSE X 1 DAY
  9. ETOPOSIDE [Suspect]
     Indication: PROPHYLAXIS AGAINST GRAFT VERSUS HOST DISEASE
  10. ANTITHYMOCYTE IMMUNOGLOBULIN [Concomitant]
     Indication: BONE MARROW CONDITIONING REGIMEN
     Dosage: 30 MG/KG PER DOSE X 3 DAYS
  11. CYCLOSPORIN A [Concomitant]
     Indication: GRAFT VERSUS HOST DISEASE
  12. MYCOPHENOLATE MOFETIL [Concomitant]
     Indication: GRAFT VERSUS HOST DISEASE

REACTIONS (4)
  - Sudden death [Fatal]
  - Acute myeloid leukaemia [Unknown]
  - Hepatosplenomegaly [Unknown]
  - Acute graft versus host disease [Unknown]
